FAERS Safety Report 17007466 (Version 1)
Quarter: 2019Q4

REPORT INFORMATION
  Report Type: Report from Study
  Country: None (occurrence: CO)
  Receive Date: 20191108
  Receipt Date: 20191108
  Transmission Date: 20200122
  Serious: Yes (Other)
  Sender: FDA-Public Use
  Company Number: CO-ABBVIE-19K-036-2993535-00

PATIENT
  Age: 51 Year
  Sex: Female
  Weight: 75 kg

DRUGS (3)
  1. HUMIRA [Suspect]
     Active Substance: ADALIMUMAB
     Indication: RHEUMATOID ARTHRITIS
     Route: 058
     Dates: start: 20170621, end: 20190820
  2. DIPYRONE [Suspect]
     Active Substance: DIPYRONE
     Indication: PAIN IN EXTREMITY
     Dosage: RECEIVED IN PAST BEFORE HUMIRA
     Route: 065
  3. DIPYRONE [Suspect]
     Active Substance: DIPYRONE
     Dosage: AS A SUSPECT
     Route: 065

REACTIONS (8)
  - Pain in extremity [Recovering/Resolving]
  - Drug hypersensitivity [Unknown]
  - Eye disorder [Recovering/Resolving]
  - Arthralgia [Recovering/Resolving]
  - Hypertension [Recovering/Resolving]
  - Intraocular pressure decreased [Recovering/Resolving]
  - Hypotension [Recovered/Resolved]
  - Seizure [Recovered/Resolved]

NARRATIVE: CASE EVENT DATE: 2019
